FAERS Safety Report 5395474-6 (Version None)
Quarter: 2007Q3

REPORT INFORMATION
  Report Type: 
  Country: None (occurrence: None)
  Receive Date: 20070724
  Receipt Date: 20070719
  Transmission Date: 20080115
  Serious: Yes (Death, Other)
  Sender: FDA-Public Use
  Company Number: B0480144A

PATIENT
  Age: 10 Month
  Sex: Male
  Weight: 5.2 kg

DRUGS (4)
  1. LAMIVUDINE [Suspect]
     Indication: ANTIVIRAL PROPHYLAXIS
     Dosage: 20MG TWICE PER DAY
     Route: 048
     Dates: start: 20070703
  2. ZIDOVUDINE [Suspect]
     Indication: ANTIVIRAL PROPHYLAXIS
     Dosage: 10MG TWICE PER DAY
     Route: 048
     Dates: start: 20070703
  3. KALETRA [Suspect]
     Indication: ANTIVIRAL PROPHYLAXIS
     Dosage: 64MG TWICE PER DAY
     Route: 048
     Dates: start: 20070703
  4. DATURA [Concomitant]

REACTIONS (5)
  - COUGH [None]
  - DEATH [None]
  - IRON DEFICIENCY ANAEMIA [None]
  - ORAL CANDIDIASIS [None]
  - VOMITING [None]
